FAERS Safety Report 9802866 (Version 3)
Quarter: 2014Q1

REPORT INFORMATION
  Report Type: Spontaneous
  Country: IT (occurrence: None)
  Receive Date: 20140102
  Receipt Date: 20140219
  Transmission Date: 20141002
  Serious: Yes (Hospitalization)
  Sender: FDA-Public Use
  Company Number: AUR-APL-2013-10751

PATIENT
  Age: 76 Year
  Sex: Female

DRUGS (7)
  1. LEVOFLOXACIN (LEVOFLOXACIN) [Suspect]
     Indication: RESPIRATORY DISORDER
     Dosage: 500MG, 1 D ORAL
     Route: 048
     Dates: start: 20131121, end: 20131124
  2. COUMADIN (WARFARIN SODIUM) [Concomitant]
  3. LANITOP (METILDIGOXIN) [Concomitant]
  4. LASITONE (OSYROL-LASIX) [Concomitant]
  5. PANTOPAN (PANTOPRAZOLE SODIUM SESQUIHYDRATE) [Concomitant]
  6. FLUIBRON (AMBROXOL HYDROCHLORIDE) [Concomitant]
  7. CLENIL (BECLOMETASONE DIPROPIONATE) [Concomitant]

REACTIONS (10)
  - Hallucination, auditory [None]
  - Hallucination, visual [None]
  - Hyperhidrosis [None]
  - Tremor [None]
  - Blood creatine phosphokinase increased [None]
  - Oxygen saturation decreased [None]
  - Blood alkaline phosphatase increased [None]
  - Blood bilirubin increased [None]
  - Blood fibrinogen increased [None]
  - International normalised ratio increased [None]
